FAERS Safety Report 11273021 (Version 2)
Quarter: 2015Q3

REPORT INFORMATION
  Report Type: Spontaneous
  Country: US (occurrence: US)
  Receive Date: 20150715
  Receipt Date: 20150814
  Transmission Date: 20151125
  Serious: Yes (Death)
  Sender: FDA-Public Use
  Company Number: US-PFIZER INC-2015232698

PATIENT
  Age: 77 Year
  Sex: Male

DRUGS (2)
  1. ZOMETA [Concomitant]
     Active Substance: ZOLEDRONIC ACID
     Indication: BONE DISORDER
     Dosage: MONTHLY
  2. SUTENT [Suspect]
     Active Substance: SUNITINIB MALATE
     Indication: NEOPLASM MALIGNANT
     Dosage: 50 MG, CYCLIC (ONCE DAILY FOR 1 WEEK, OFF 1 WEEK- REPEATED)
     Dates: start: 201506

REACTIONS (1)
  - Death [Fatal]

NARRATIVE: CASE EVENT DATE: 20150703
